FAERS Safety Report 24041678 (Version 1)
Quarter: 2024Q3

REPORT INFORMATION
  Report Type: Spontaneous
  Country: US (occurrence: US)
  Receive Date: 20240702
  Receipt Date: 20240702
  Transmission Date: 20241017
  Serious: No
  Sender: SAREPTA THERAPEUTICS
  Company Number: US-SAREPTA THERAPEUTICS INC.-SRP2024-004223

PATIENT
  Age: 3 Year
  Sex: Male
  Weight: 15.4 kg

DRUGS (2)
  1. EXONDYS 51 [Suspect]
     Active Substance: ETEPLIRSEN
     Indication: Duchenne muscular dystrophy
     Dosage: 500 MILLIGRAM, WEEKLY
     Route: 042
     Dates: end: 20231227
  2. EXONDYS 51 [Suspect]
     Active Substance: ETEPLIRSEN
     Dosage: 500 MILLIGRAM, WEEKLY
     Route: 042
     Dates: start: 20240111

REACTIONS (2)
  - Patient uncooperative [Recovered/Resolved]
  - Poor venous access [Recovered/Resolved]

NARRATIVE: CASE EVENT DATE: 20240104
